FAERS Safety Report 8105411-9 (Version None)
Quarter: 2012Q1

REPORT INFORMATION
  Report Type: 
  Country: None (occurrence: None)
  Receive Date: 20120201
  Receipt Date: 20120123
  Transmission Date: 20120608
  Serious: Yes (Other)
  Sender: FDA-Public Use
  Company Number: US-ASTRAZENECA-2012SE04743

PATIENT
  Age: 63 Year
  Sex: Male

DRUGS (2)
  1. SEROQUEL [Suspect]
     Indication: NEURALGIA
     Route: 048
  2. SEROQUEL [Suspect]
     Route: 048

REACTIONS (9)
  - THERAPEUTIC RESPONSE UNEXPECTED [None]
  - CEREBROVASCULAR ACCIDENT [None]
  - OFF LABEL USE [None]
  - WITHDRAWAL SYNDROME [None]
  - DRUG DOSE OMISSION [None]
  - ANXIETY [None]
  - ABASIA [None]
  - NEUROPATHY PERIPHERAL [None]
  - BLINDNESS UNILATERAL [None]
